FAERS Safety Report 7030888-X (Version None)
Quarter: 2010Q4

REPORT INFORMATION
  Report Type: 
  Country: None (occurrence: None)
  Receive Date: 20101006
  Receipt Date: 20101005
  Transmission Date: 20110411
  Serious: Yes (Hospitalization)
  Sender: FDA-Public Use
  Company Number: US-BRISTOL-MYERS SQUIBB COMPANY-15209380

PATIENT
  Age: 53 Year
  Sex: Female
  Weight: 57 kg

DRUGS (4)
  1. CISPLATIN [Suspect]
     Indication: MESOTHELIOMA
     Dosage: THERAPY DURATION 50 DAYS AUC 4
     Route: 042
     Dates: start: 20090929
  2. PEMETREXED DISODIUM [Suspect]
     Indication: MESOTHELIOMA
     Dosage: THERAPY DURATION 50 DAYS
     Route: 042
     Dates: start: 20090929
  3. VANCOMYCIN [Concomitant]
     Indication: INFECTION
     Dosage: THERAPY DURATION 1 DAYS
     Route: 042
     Dates: start: 20100117, end: 20100117
  4. TAMIFLU [Concomitant]
     Indication: INFLUENZA
     Dosage: THERAPY DURATION 2 DAYS
     Route: 048
     Dates: start: 20100117, end: 20100118

REACTIONS (5)
  - DYSPNOEA [None]
  - FATIGUE [None]
  - MUSCULOSKELETAL CHEST PAIN [None]
  - NEUTROPENIA [None]
  - PYREXIA [None]
